FAERS Safety Report 7105917-5 (Version None)
Quarter: 2010Q4

REPORT INFORMATION
  Report Type: 
  Country: None (occurrence: None)
  Receive Date: 20101116
  Receipt Date: 20101110
  Transmission Date: 20110411
  Serious: Yes (Hospitalization)
  Sender: FDA-Public Use
  Company Number: B0683735A

PATIENT
  Sex: Female
  Weight: 62 kg

DRUGS (6)
  1. AUGMENTIN '125' [Suspect]
     Dosage: 1G THREE TIMES PER DAY
     Route: 042
     Dates: start: 20101015, end: 20101023
  2. CORDARONE [Suspect]
     Route: 050
     Dates: start: 20101024, end: 20101024
  3. NEXIUM [Suspect]
     Dosage: 40MG PER DAY
     Route: 065
     Dates: start: 20101015, end: 20101025
  4. DIAMOX SRC [Concomitant]
     Route: 065
  5. LASIX [Concomitant]
     Route: 065
  6. UNFRACTIONATED HEPARIN [Concomitant]
     Route: 065
     Dates: end: 20101027

REACTIONS (2)
  - HEPATOCELLULAR INJURY [None]
  - MIXED LIVER INJURY [None]
